FAERS Safety Report 23476796 (Version 1)
Quarter: 2024Q1

REPORT INFORMATION
  Report Type: Report from Study
  Country: US (occurrence: US)
  Receive Date: 20240204
  Receipt Date: 20240204
  Transmission Date: 20240410
  Serious: No
  Sender: FDA-Public Use
  Company Number: US-EXELIXIS-CABO-23064426

PATIENT
  Age: 72 Year
  Sex: Female
  Weight: 61.791 kg

DRUGS (2)
  1. CABOMETYX [Suspect]
     Active Substance: CABOZANTINIB S-MALATE
     Indication: Malignant neoplasm of renal pelvis
     Dosage: 40 MG, QD (TWO TABLETS OF 20 MG ONCE DAILY)
     Route: 048
     Dates: start: 20221123, end: 20230504
  2. CABOMETYX [Suspect]
     Active Substance: CABOZANTINIB S-MALATE
     Dosage: 20 MG
     Route: 048
     Dates: start: 20230626

REACTIONS (3)
  - Skin ulcer [Recovered/Resolved]
  - Proteinuria [Unknown]
  - Off label use [Unknown]

NARRATIVE: CASE EVENT DATE: 20230501
